FAERS Safety Report 5073677-8 (Version None)
Quarter: 2006Q3

REPORT INFORMATION
  Report Type: 
  Country: None (occurrence: None)
  Receive Date: 20060808
  Receipt Date: 20041214
  Transmission Date: 20061208
  Serious: No
  Sender: FDA-Public Use
  Company Number: US-AMGEN-KDL103491

PATIENT
  Sex: Female
  Weight: 79.9 kg

DRUGS (11)
  1. PROCRIT [Suspect]
     Indication: RENAL FAILURE CHRONIC
     Route: 058
     Dates: start: 20041123
  2. POTASSIUM [Concomitant]
  3. CAPOTEN [Concomitant]
  4. ALLOPURINOL [Concomitant]
  5. LIPITOR [Concomitant]
  6. LASIX [Concomitant]
  7. COMBIVENT [Concomitant]
     Route: 055
  8. PLAVIX [Concomitant]
  9. NIFEREX [Concomitant]
  10. ACTOS [Concomitant]
  11. AMARYL [Concomitant]

REACTIONS (3)
  - CONDITION AGGRAVATED [None]
  - OEDEMA PERIPHERAL [None]
  - PAIN IN EXTREMITY [None]
